FAERS Safety Report 17982924 (Version 1)
Quarter: 2020Q3

REPORT INFORMATION
  Report Type: Spontaneous
  Country: KR (occurrence: KR)
  Receive Date: 20200706
  Receipt Date: 20200706
  Transmission Date: 20201103
  Serious: Yes (Other)
  Sender: FDA-Public Use
  Company Number: KR-PFIZER INC-2020255500

PATIENT
  Age: 50 Year
  Sex: Female
  Weight: 50.55 kg

DRUGS (4)
  1. SIROLIMUS. [Suspect]
     Active Substance: SIROLIMUS
     Indication: IMMUNOSUPPRESSANT DRUG THERAPY
     Dosage: 1 MG, DAILY
  2. SIROLIMUS. [Suspect]
     Active Substance: SIROLIMUS
     Dosage: 4 MG, DAILY
  3. PREDNISOLONE. [Concomitant]
     Active Substance: PREDNISOLONE
     Indication: IMMUNOSUPPRESSANT DRUG THERAPY
     Dosage: UNK
  4. MYCOPHENOLATE MOFETIL. [Concomitant]
     Active Substance: MYCOPHENOLATE MOFETIL
     Indication: IMMUNOSUPPRESSANT DRUG THERAPY
     Dosage: UNK

REACTIONS (2)
  - Ascites [Recovered/Resolved]
  - Central venous pressure increased [Recovered/Resolved]
